FAERS Safety Report 8378686-9 (Version None)
Quarter: 2012Q2

REPORT INFORMATION
  Report Type: 
  Country: None (occurrence: None)
  Receive Date: 20120522
  Receipt Date: 20120507
  Transmission Date: 20120825
  Serious: Yes (Death, Other)
  Sender: FDA-Public Use
  Company Number: SA-SPECTRUM PHARMACEUTICALS, INC.-12-F-PK-00082

PATIENT

DRUGS (10)
  1. OXALIPLATIN [Suspect]
     Indication: NEOPLASM MALIGNANT
     Dosage: UNK
     Route: 065
  2. ADRIAMYCIN PFS [Suspect]
     Indication: NEOPLASM MALIGNANT
     Dosage: UNK
     Route: 065
  3. METHOTREXATE [Suspect]
     Indication: NEOPLASM MALIGNANT
     Dosage: UNK
     Route: 065
  4. FLUOROURACIL [Suspect]
     Indication: NEOPLASM MALIGNANT
     Dosage: UNK
     Route: 065
  5. CISPLATIN [Suspect]
     Indication: NEOPLASM MALIGNANT
     Dosage: UNK
     Route: 065
  6. LEUCOVORIN CALCIUM [Suspect]
     Indication: NEOPLASM MALIGNANT
     Dosage: UNK
     Route: 065
  7. CYTOXAN [Suspect]
     Indication: NEOPLASM MALIGNANT
     Dosage: UNK
     Route: 065
  8. CAPECITABINE [Suspect]
     Indication: NEOPLASM MALIGNANT
     Dosage: UNK
     Route: 065
  9. IRINOTECAN HCL [Suspect]
     Indication: NEOPLASM MALIGNANT
     Dosage: UNK
     Route: 065
  10. RADIOTHERAPY [Suspect]
     Indication: NEOPLASM MALIGNANT
     Dosage: UNK
     Route: 065

REACTIONS (6)
  - ATRIOVENTRICULAR BLOCK [None]
  - CARDIAC ARREST [None]
  - BRADYCARDIA [None]
  - RHYTHM IDIOVENTRICULAR [None]
  - CONDUCTION DISORDER [None]
  - VENTRICULAR TACHYCARDIA [None]
